FAERS Safety Report 19577481 (Version 1)
Quarter: 2021Q3

REPORT INFORMATION
  Report Type: Spontaneous
  Country: FR (occurrence: FR)
  Receive Date: 20210719
  Receipt Date: 20210719
  Transmission Date: 20211014
  Serious: Yes (Other)
  Sender: FDA-Public Use
  Company Number: FR-FRESENIUS KABI-FK202107365

PATIENT
  Age: 68 Year
  Sex: Male

DRUGS (2)
  1. OXALIPLATIN (MANUFACTURER UNKNOWN) [Suspect]
     Active Substance: OXALIPLATIN
     Indication: PLEURAL MESOTHELIOMA
     Dosage: FIRST CYCLE OF CHEMOTHERAPY
     Route: 065
  2. RALTITREXED [Suspect]
     Active Substance: RALTITREXED
     Indication: PLEURAL MESOTHELIOMA
     Dosage: FIRST CYCLE OF CHEMOTHERAPY
     Route: 065

REACTIONS (1)
  - Haematotoxicity [Unknown]
